FAERS Safety Report 16451836 (Version 3)
Quarter: 2019Q4

REPORT INFORMATION
  Report Type: Report from Study
  Country: MX (occurrence: MX)
  Receive Date: 20190619
  Receipt Date: 20191016
  Transmission Date: 20200122
  Serious: Yes (Other)
  Sender: FDA-Public Use
  Company Number: PHHY2019MX140951

PATIENT
  Age: 80 Year
  Sex: Female
  Weight: 47 kg

DRUGS (2)
  1. CLONAZEPAM. [Concomitant]
     Active Substance: CLONAZEPAM
     Indication: SLEEP DISORDER
     Dosage: 10 DRP, QD
     Route: 048
     Dates: start: 201904
  2. CO-DIOVAN [Suspect]
     Active Substance: HYDROCHLOROTHIAZIDE\VALSARTAN
     Indication: BLOOD PRESSURE ABNORMAL
     Dosage: 1 DF, QD (HYDROCHLOROTHIAZIDE 12.5 MG, VALSARTAN 320 MG) APPROXIMATELY 3 YEARS AGO
     Route: 048
     Dates: start: 2015, end: 201905

REACTIONS (4)
  - Cerebral infarction [Unknown]
  - Aggression [Unknown]
  - Insomnia [Unknown]
  - Epilepsy [Recovered/Resolved]

NARRATIVE: CASE EVENT DATE: 201903
